FAERS Safety Report 15431801 (Version 2)
Quarter: 2019Q2

REPORT INFORMATION
  Report Type: Report from Study
  Country: US (occurrence: US)
  Receive Date: 20180926
  Receipt Date: 20190524
  Transmission Date: 20190711
  Serious: Yes (Death, Hospitalization)
  Sender: FDA-Public Use
  Company Number: US-ACTELION-A-US2018-177425

PATIENT
  Age: 39 Year
  Sex: Female

DRUGS (5)
  1. FLOLAN [Concomitant]
     Active Substance: EPOPROSTENOL SODIUM
     Dosage: UNK
     Dates: start: 20180802
  2. UPTRAVI [Suspect]
     Active Substance: SELEXIPAG
     Indication: PULMONARY ARTERIAL HYPERTENSION
     Dosage: 800 MCG, BID
     Route: 048
     Dates: start: 20180718, end: 20180730
  3. UPTRAVI [Suspect]
     Active Substance: SELEXIPAG
     Dosage: UNK
     Route: 048
     Dates: start: 20170410
  4. OPSUMIT [Suspect]
     Active Substance: MACITENTAN
     Indication: PULMONARY ARTERIAL HYPERTENSION
     Dosage: 10 MG, UNK
     Route: 048
     Dates: start: 20150303
  5. ADCIRCA [Concomitant]
     Active Substance: TADALAFIL
     Dosage: 40 MG, QD
     Dates: start: 20140314

REACTIONS (8)
  - Cardio-respiratory arrest [Fatal]
  - Right ventricular failure [Unknown]
  - Hypotension [Not Recovered/Not Resolved]
  - Syncope [Unknown]
  - Pulmonary arterial hypertension [Unknown]
  - Haemoglobin decreased [Unknown]
  - Tachycardia [Fatal]
  - Hypoxia [Fatal]

NARRATIVE: CASE EVENT DATE: 20180916
